FAERS Safety Report 24985056 (Version 1)
Quarter: 2025Q1

REPORT INFORMATION
  Report Type: Spontaneous
  Country: US (occurrence: US)
  Receive Date: 20250219
  Receipt Date: 20250219
  Transmission Date: 20250409
  Serious: No
  Sender: ROCHE
  Company Number: US-ROCHE-10000208192

PATIENT
  Age: 50 Year
  Sex: Female
  Weight: 99.79 kg

DRUGS (4)
  1. XOLAIR PFS [Suspect]
     Active Substance: OMALIZUMAB
     Indication: Hypersensitivity
     Dosage: 2 OF 150MG PRE-FILLED SYRINGE, IN THE BELLY
     Route: 058
     Dates: start: 2023, end: 202408
  2. XOLAIR PFS [Suspect]
     Active Substance: OMALIZUMAB
     Indication: Swelling
  3. XOLAIR PFS [Suspect]
     Active Substance: OMALIZUMAB
     Indication: Swelling
     Dosage: IN THE FAT, IN THE LEG
     Route: 058
     Dates: start: 20250111
  4. XOLAIR PFS [Suspect]
     Active Substance: OMALIZUMAB
     Indication: Hypersensitivity

REACTIONS (7)
  - Accidental exposure to product [Unknown]
  - Injection site pain [Recovered/Resolved]
  - Pain [Recovered/Resolved]
  - Pruritus [Recovered/Resolved]
  - Paraesthesia [Recovered/Resolved]
  - Off label use [Unknown]
  - Needle issue [Unknown]

NARRATIVE: CASE EVENT DATE: 20250111
